FAERS Safety Report 26065907 (Version 1)
Quarter: 2025Q4

REPORT INFORMATION
  Report Type: Report from Study
  Country: CA (occurrence: CA)
  Receive Date: 20251119
  Receipt Date: 20251119
  Transmission Date: 20260117
  Serious: Yes (Other)
  Sender: ROCHE
  Company Number: CA-ROCHE-1651558

PATIENT
  Age: 61 Year
  Sex: Female

DRUGS (47)
  1. ACTEMRA [Suspect]
     Active Substance: TOCILIZUMAB
     Indication: Rheumatoid arthritis
     Route: 042
     Dates: start: 20140224, end: 20160318
  2. ACTEMRA [Suspect]
     Active Substance: TOCILIZUMAB
     Route: 042
     Dates: start: 20150302
  3. ACTEMRA [Suspect]
     Active Substance: TOCILIZUMAB
     Route: 042
     Dates: start: 20150329
  4. ACTEMRA [Suspect]
     Active Substance: TOCILIZUMAB
     Route: 042
  5. ACTEMRA [Suspect]
     Active Substance: TOCILIZUMAB
     Route: 042
  6. ACTEMRA [Suspect]
     Active Substance: TOCILIZUMAB
     Route: 042
  7. ACTEMRA [Suspect]
     Active Substance: TOCILIZUMAB
     Route: 042
     Dates: start: 20191220
  8. ACTEMRA [Suspect]
     Active Substance: TOCILIZUMAB
     Indication: Rheumatoid arthritis
     Route: 058
     Dates: start: 20141124, end: 20141222
  9. ACTEMRA [Suspect]
     Active Substance: TOCILIZUMAB
     Route: 058
     Dates: start: 20160418, end: 201804
  10. ACTEMRA [Suspect]
     Active Substance: TOCILIZUMAB
     Route: 058
     Dates: start: 201804, end: 20190409
  11. ACTEMRA [Suspect]
     Active Substance: TOCILIZUMAB
     Dosage: SWITCHED BACK TO IV DUE TO COVERAGE ISSUES. LAST KNOWN INJECTION DATE WAS 26/JAN/2015
     Route: 058
     Dates: start: 20141222, end: 20150126
  12. RITUXAN [Suspect]
     Active Substance: RITUXIMAB
     Indication: Rheumatoid arthritis
     Dosage: LATEST RITUXAN INFUSION WAS GIVEN ON 22/DEC/2020?FREQUENCY: DAY 1; 15
     Route: 042
  13. RITUXAN [Suspect]
     Active Substance: RITUXIMAB
     Route: 042
  14. RITUXAN [Suspect]
     Active Substance: RITUXIMAB
     Route: 042
  15. RITUXAN [Suspect]
     Active Substance: RITUXIMAB
     Route: 042
  16. RITUXAN [Suspect]
     Active Substance: RITUXIMAB
     Route: 042
  17. RITUXAN [Suspect]
     Active Substance: RITUXIMAB
     Route: 042
  18. RITUXAN [Suspect]
     Active Substance: RITUXIMAB
     Route: 042
  19. RITUXAN [Suspect]
     Active Substance: RITUXIMAB
     Route: 042
  20. PREDNISONE [Suspect]
     Active Substance: PREDNISONE
     Indication: Product used for unknown indication
     Dosage: ONGOING, DECREASE 2.5MG EVERY 5 DAYS
     Route: 048
  21. TYLENOL [Suspect]
     Active Substance: ACETAMINOPHEN
     Indication: Premedication
     Route: 048
  22. NAPROXEN [Concomitant]
     Active Substance: NAPROXEN
     Indication: Inflammation
     Route: 048
  23. NAPROXEN [Concomitant]
     Active Substance: NAPROXEN
     Indication: Pain
  24. SYNTHROID [Concomitant]
     Active Substance: LEVOTHYROXINE SODIUM
  25. FOLIC ACID [Concomitant]
     Active Substance: FOLIC ACID
  26. NEXIUM [Concomitant]
     Active Substance: ESOMEPRAZOLE MAGNESIUM
  27. METHOTREXATE [Concomitant]
     Active Substance: METHOTREXATE
     Indication: Product used for unknown indication
     Route: 058
  28. ELAVIL [Concomitant]
     Active Substance: AMITRIPTYLINE HYDROCHLORIDE
  29. FOLIC ACID [Concomitant]
     Active Substance: FOLIC ACID
     Dosage: TWO 5MG WEEKLY
     Route: 048
  30. ACETAMINOPHEN [Concomitant]
     Active Substance: ACETAMINOPHEN
     Indication: Pain
     Dosage: ONE TO TWO 500 MG
     Route: 048
  31. ACETAMINOPHEN [Concomitant]
     Active Substance: ACETAMINOPHEN
     Indication: Pyrexia
  32. AMLODIPINE [Concomitant]
     Active Substance: AMLODIPINE BESYLATE
     Indication: Blood pressure measurement
     Dosage: BEDTIME
     Route: 048
  33. ATENOLOL [Concomitant]
     Active Substance: ATENOLOL
     Indication: Blood pressure measurement
     Route: 048
  34. ATORVASTATIN [Concomitant]
     Active Substance: ATORVASTATIN
     Indication: Blood cholesterol abnormal
  35. CLOPIDOGREL [Concomitant]
     Active Substance: CLOPIDOGREL BISULFATE
     Dosage: BREAKFAST
     Route: 048
  36. CHOLECALCIFEROL [Concomitant]
     Active Substance: CHOLECALCIFEROL
     Route: 048
  37. FERROUS SULFATE [Concomitant]
     Active Substance: FERROUS SULFATE
     Route: 048
  38. PANTOPRAZOLE [Concomitant]
     Active Substance: PANTOPRAZOLE
     Indication: Ill-defined disorder
     Route: 048
  39. DICLOFENAC DIETHYLAMINE [Concomitant]
     Active Substance: DICLOFENAC DIETHYLAMINE
     Route: 061
  40. XELJANZ [Concomitant]
     Active Substance: TOFACITINIB CITRATE
  41. CYCLOBENZAPRINE [Concomitant]
     Active Substance: CYCLOBENZAPRINE
  42. CHOLECALCIFEROL [Concomitant]
     Active Substance: CHOLECALCIFEROL
  43. FERROUS SULFATE [Concomitant]
     Active Substance: FERROUS SULFATE
     Route: 048
  44. ACETAMINOPHEN [Concomitant]
     Active Substance: ACETAMINOPHEN
  45. ASPIRIN [Concomitant]
     Active Substance: ASPIRIN
  46. MORPHINE [Concomitant]
     Active Substance: MORPHINE
  47. TYLENOL [Concomitant]
     Active Substance: ACETAMINOPHEN

REACTIONS (37)
  - Heart rate decreased [Unknown]
  - Blood pressure increased [Unknown]
  - Oxygen saturation decreased [Unknown]
  - Pneumonia [Recovered/Resolved]
  - Dental caries [Unknown]
  - Device breakage [Unknown]
  - Oedema peripheral [Not Recovered/Not Resolved]
  - Pain in extremity [Not Recovered/Not Resolved]
  - Arthralgia [Not Recovered/Not Resolved]
  - Pain [Recovering/Resolving]
  - Drug ineffective [Unknown]
  - Poor venous access [Unknown]
  - Therapeutic product effect decreased [Unknown]
  - Drug ineffective [Unknown]
  - Rheumatoid arthritis [Not Recovered/Not Resolved]
  - Psychiatric symptom [Unknown]
  - Fall [Unknown]
  - Insomnia [Recovered/Resolved]
  - Influenza [Recovering/Resolving]
  - Psychiatric symptom [Not Recovered/Not Resolved]
  - Vertigo [Unknown]
  - Crying [Recovered/Resolved]
  - Pain [Not Recovered/Not Resolved]
  - Insomnia [Recovering/Resolving]
  - Asthenia [Recovering/Resolving]
  - Chest discomfort [Recovered/Resolved]
  - Respiratory rate increased [Unknown]
  - Blood pressure systolic increased [Unknown]
  - Skin burning sensation [Recovered/Resolved]
  - Diarrhoea [Unknown]
  - Infusion related reaction [Unknown]
  - Rectal haemorrhage [Recovered/Resolved]
  - Glossodynia [Recovered/Resolved]
  - Blood pressure fluctuation [Unknown]
  - Blood pressure diastolic decreased [Unknown]
  - Tongue disorder [Recovered/Resolved]
  - Arthropathy [Unknown]

NARRATIVE: CASE EVENT DATE: 20151026
